FAERS Safety Report 6032499-1 (Version None)
Quarter: 2009Q1

REPORT INFORMATION
  Report Type: 
  Country: None (occurrence: None)
  Receive Date: 20090109
  Receipt Date: 20081007
  Transmission Date: 20090719
  Serious: No
  Sender: FDA-Public Use
  Company Number: A0750822A

PATIENT
  Age: 57 Year
  Sex: Female

DRUGS (3)
  1. TYKERB [Suspect]
     Indication: BREAST CANCER
     Route: 048
  2. HERCEPTIN [Concomitant]
  3. ZOMETA [Concomitant]

REACTIONS (3)
  - DRY SKIN [None]
  - NAIL DISORDER [None]
  - SKIN CHAPPED [None]
